FAERS Safety Report 9121027 (Version 1)
Quarter: 2013Q1

REPORT INFORMATION
  Report Type: Spontaneous
  Country: GB (occurrence: GB)
  Receive Date: 20130226
  Receipt Date: 20130226
  Transmission Date: 20140127
  Serious: Yes (Other)
  Sender: FDA-Public Use
  Company Number: GB-MYLANLABS-2013S1003671

PATIENT
  Age: 20 Year
  Sex: Male
  Weight: 68 kg

DRUGS (3)
  1. CITALOPRAM [Suspect]
     Indication: DEPRESSION
     Route: 048
     Dates: start: 20111105, end: 20120802
  2. TRAZODONE [Interacting]
     Indication: DEPRESSION
     Route: 048
     Dates: start: 20111227, end: 20120313
  3. VENLAFAXINE [Concomitant]
     Indication: PRODUCT USED FOR UNKNOWN INDICATION

REACTIONS (6)
  - Drug interaction [Unknown]
  - Hallucination [Unknown]
  - Impulsive behaviour [Unknown]
  - Insomnia [Unknown]
  - Psychotic disorder [Recovered/Resolved with Sequelae]
  - Logorrhoea [Unknown]
